FAERS Safety Report 23155013 (Version 2)
Quarter: 2025Q1

REPORT INFORMATION
  Report Type: Report from Study
  Country: MX (occurrence: MX)
  Receive Date: 20231107
  Receipt Date: 20250227
  Transmission Date: 20250409
  Serious: Yes (Other)
  Sender: NOVARTIS
  Company Number: MX-002147023-NVSC2023MX235148

PATIENT
  Sex: Male

DRUGS (3)
  1. OFATUMUMAB [Suspect]
     Active Substance: OFATUMUMAB
     Indication: Multiple sclerosis
     Dosage: 20 MG, Q4W
     Route: 058
     Dates: start: 20221228
  2. OFATUMUMAB [Suspect]
     Active Substance: OFATUMUMAB
     Dosage: 20 MG, QMO
     Route: 058
  3. DALFAMPRIDINE [Concomitant]
     Active Substance: DALFAMPRIDINE
     Indication: Product used for unknown indication
     Dosage: UNK, Q12H
     Route: 065

REACTIONS (8)
  - Paraparesis [Unknown]
  - Pyramidal tract syndrome [Unknown]
  - Urinary retention [Unknown]
  - Pulmonary vein occlusion [Unknown]
  - Ocular dysmetria [Unknown]
  - Lymphopenia [Unknown]
  - Dyslipidaemia [Unknown]
  - Inappropriate schedule of product administration [Not Recovered/Not Resolved]
